FAERS Safety Report 8238220-0 (Version None)
Quarter: 2012Q1

REPORT INFORMATION
  Report Type: 
  Country: None (occurrence: None)
  Receive Date: 20120327
  Receipt Date: 20120322
  Transmission Date: 20120608
  Serious: Yes (Hospitalization)
  Sender: FDA-Public Use
  Company Number: PHHY2012BR025701

PATIENT
  Age: 89 Year
  Sex: Female

DRUGS (1)
  1. DIOVAN [Suspect]
     Indication: CARDIAC DISORDER
     Dosage: 2 DF X (160 MG), TWO TABLETS A DAY

REACTIONS (1)
  - PAIN IN EXTREMITY [None]
